FAERS Safety Report 7259080-0 (Version None)
Quarter: 2011Q1

REPORT INFORMATION
  Report Type: 
  Country: None (occurrence: None)
  Receive Date: 20110129
  Receipt Date: 20100809
  Transmission Date: 20110831
  Serious: No
  Sender: FDA-Public Use
  Company Number: US-ABBOTT-10P-163-0663588-00

PATIENT
  Sex: Female
  Weight: 68.1 kg

DRUGS (10)
  1. NITROGLYCERIN [Concomitant]
  2. HUMIRA [Suspect]
     Indication: RHEUMATOID ARTHRITIS
     Dosage: LOT NUMBER AND EXPIRATION DATE WERE UNKNOWN.
     Route: 058
  3. ATENOLOL [Concomitant]
  4. PREVACID [Concomitant]
  5. DIOVAN HCT [Concomitant]
  6. FOLIC ACID [Concomitant]
  7. CRESTOR [Concomitant]
  8. METHOTREXATE [Concomitant]
     Indication: RHEUMATOID ARTHRITIS
  9. PREMPRO [Concomitant]
  10. ASPIRIN [Concomitant]
     Route: 048

REACTIONS (4)
  - DEVICE MALFUNCTION [None]
  - INJECTION SITE PAIN [None]
  - INJECTION SITE HAEMATOMA [None]
  - INJECTION SITE HAEMORRHAGE [None]
